FAERS Safety Report 8394786-1 (Version None)
Quarter: 2012Q2

REPORT INFORMATION
  Report Type: 
  Country: None (occurrence: None)
  Receive Date: 20120530
  Receipt Date: 20120525
  Transmission Date: 20120825
  Serious: Yes (Death)
  Sender: FDA-Public Use
  Company Number: US-ASTELLAS-2012US005005

PATIENT
  Sex: Male

DRUGS (1)
  1. MYCAMINE [Suspect]
     Indication: SEPTIC SHOCK
     Dosage: 100 MG, UNKNOWN/D
     Route: 065
     Dates: start: 20120420, end: 20120427

REACTIONS (2)
  - DEATH [None]
  - OFF LABEL USE [None]
